FAERS Safety Report 5024867-1 (Version None)
Quarter: 2006Q2

REPORT INFORMATION
  Report Type: 
  Country: None (occurrence: None)
  Receive Date: 20060613
  Receipt Date: 20060509
  Transmission Date: 20061013
  Serious: Yes (Death)
  Sender: FDA-Public Use
  Company Number: JP-SANOFI-SYNTHELABO-A01200603716

PATIENT
  Age: 76 Year
  Sex: Male
  Weight: 57 kg

DRUGS (7)
  1. SODIUM BICARBONATE [Concomitant]
     Route: 041
     Dates: start: 20060409, end: 20060409
  2. EPINEPHRINE [Concomitant]
     Dosage: UNK
     Route: 042
     Dates: start: 20060409, end: 20060409
  3. DOPAMINE HCL [Concomitant]
     Dosage: UNK
     Route: 041
     Dates: start: 20060409, end: 20060409
  4. POLAPREZINC [Concomitant]
     Route: 048
     Dates: start: 20060105, end: 20060119
  5. FLUOROURACIL [Suspect]
     Indication: COLON CANCER
     Dosage: 520 MG/BODY=325 MG/M2 IN BOLUS THEN 800 MG/BODY=500 MG/M2
     Route: 042
     Dates: start: 20060324, end: 20060325
  6. OXALIPLATIN [Suspect]
     Indication: COLON CANCER
     Route: 042
     Dates: start: 20060324, end: 20060324
  7. LEUCOVORIN CALCIUM [Suspect]
     Indication: COLON CANCER
     Route: 042
     Dates: start: 20060324, end: 20060325

REACTIONS (15)
  - ASPIRATION [None]
  - ASTHMA [None]
  - CARDIAC ARREST [None]
  - COMPUTERISED TOMOGRAM ABNORMAL [None]
  - DECREASED APPETITE [None]
  - DIFFUSE ALVEOLAR DAMAGE [None]
  - DYSSTASIA [None]
  - INTERSTITIAL LUNG DISEASE [None]
  - LOSS OF CONSCIOUSNESS [None]
  - LUNG DISORDER [None]
  - LYMPHADENOPATHY [None]
  - MOUTH BREATHING [None]
  - NASOPHARYNGITIS [None]
  - PULMONARY FIBROSIS [None]
  - THERAPY NON-RESPONDER [None]
